FAERS Safety Report 8333609-3 (Version None)
Quarter: 2012Q2

REPORT INFORMATION
  Report Type: 
  Country: None (occurrence: None)
  Receive Date: 20120503
  Receipt Date: 20101201
  Transmission Date: 20120825
  Serious: No
  Sender: FDA-Public Use
  Company Number: US-TEVA-2010006234

PATIENT
  Sex: Female
  Weight: 70.37 kg

DRUGS (5)
  1. NUVIGIL [Suspect]
     Indication: NARCOLEPSY
     Route: 048
     Dates: start: 20101118, end: 20101130
  2. ZOLOFT [Concomitant]
  3. XANAX [Concomitant]
  4. AMBIEN [Concomitant]
  5. ESTRADIOL [Concomitant]

REACTIONS (3)
  - COMPULSIVE LIP BITING [None]
  - INSOMNIA [None]
  - MEDICATION ERROR [None]
